FAERS Safety Report 21107141 (Version 4)
Quarter: 2022Q3

REPORT INFORMATION
  Report Type: Report from Study
  Country: CA (occurrence: CA)
  Receive Date: 20220720
  Receipt Date: 20220929
  Transmission Date: 20221027
  Serious: Yes (Other)
  Sender: FDA-Public Use
  Company Number: CA-Taiho Oncology Inc-EU-2022-01819

PATIENT
  Age: 47 Year
  Sex: Female
  Weight: 61.9 kg

DRUGS (1)
  1. LONSURF [Suspect]
     Active Substance: TIPIRACIL HYDROCHLORIDE\TRIFLURIDINE
     Indication: Colorectal cancer metastatic
     Dosage: UNK
     Route: 048
     Dates: start: 20220617

REACTIONS (7)
  - Haemoglobin decreased [Unknown]
  - Disease progression [Unknown]
  - Psychiatric symptom [Unknown]
  - Abdominal distension [Unknown]
  - Dyspnoea exertional [Not Recovered/Not Resolved]
  - Asthenia [Unknown]
  - Decreased appetite [Unknown]
